FAERS Safety Report 5208020-4 (Version None)
Quarter: 2007Q1

REPORT INFORMATION
  Report Type: 
  Country: None (occurrence: None)
  Receive Date: 20070110
  Receipt Date: 20070102
  Transmission Date: 20070707
  Serious: Yes (Other)
  Sender: FDA-Public Use
  Company Number: CHNY2007AU00443

PATIENT
  Age: 40 Year
  Sex: Male

DRUGS (1)
  1. NICOTINE [Suspect]
     Indication: SMOKING CESSATION THERAPY
     Dosage: 4 MG, ONCE/SINGLE, CHEWED
     Dates: start: 20061230, end: 20061230

REACTIONS (2)
  - OROPHARYNGEAL SWELLING [None]
  - THROAT TIGHTNESS [None]
